FAERS Safety Report 6932097-9 (Version None)
Quarter: 2010Q3

REPORT INFORMATION
  Report Type: 
  Country: None (occurrence: None)
  Receive Date: 20100819
  Receipt Date: 20100806
  Transmission Date: 20110219
  Serious: Yes (Hospitalization, Disabling)
  Sender: FDA-Public Use
  Company Number: A0862644A

PATIENT
  Age: 53 Year
  Sex: Female
  Weight: 63.6 kg

DRUGS (13)
  1. AVANDIA [Suspect]
     Dosage: 8MG PER DAY
     Route: 048
     Dates: start: 20050601
  2. VERAPAMIL [Concomitant]
  3. AMITRIPTYLINE HYDROCHLORIDE [Concomitant]
  4. MONOPRIL [Concomitant]
  5. PIROXICAM [Concomitant]
  6. ASPIRIN [Concomitant]
  7. GLIPIZIDE [Concomitant]
  8. MINOXIDIL [Concomitant]
  9. GLUCOPHAGE [Concomitant]
  10. CLONIDINE [Concomitant]
  11. ZANTAC [Concomitant]
  12. TRIAMTERENE AND HYDROCHLOROTHIAZIDE [Concomitant]
  13. POTASSIUM [Concomitant]

REACTIONS (10)
  - ACUTE RESPIRATORY FAILURE [None]
  - CARDIAC ARREST [None]
  - CARDIAC FAILURE CONGESTIVE [None]
  - CARDIOPULMONARY FAILURE [None]
  - CONGESTIVE CARDIOMYOPATHY [None]
  - DIALYSIS [None]
  - METABOLIC ACIDOSIS [None]
  - PERIPHERAL ISCHAEMIA [None]
  - PULMONARY OEDEMA [None]
  - TOE AMPUTATION [None]
